FAERS Safety Report 7400533-X (Version None)
Quarter: 2011Q2

REPORT INFORMATION
  Report Type: 
  Country: None (occurrence: None)
  Receive Date: 20110407
  Receipt Date: 20110405
  Transmission Date: 20111010
  Serious: Yes (Other)
  Sender: FDA-Public Use
  Company Number: GB-PFIZER INC-2011075796

PATIENT
  Age: 57 Year
  Sex: Female

DRUGS (5)
  1. OMEPRAZOLE [Concomitant]
     Dosage: UNK
  2. DOVOBET [Concomitant]
     Dosage: UNK
  3. DOVONEX [Concomitant]
     Dosage: UNK
  4. AZATHIOPRINE [Concomitant]
     Dosage: UNK
  5. CHAMPIX [Suspect]
     Indication: SMOKING CESSATION THERAPY
     Dosage: UNK
     Route: 048
     Dates: start: 20101024, end: 20101122

REACTIONS (3)
  - PSORIASIS [None]
  - ERYTHEMA [None]
  - PAIN [None]
